FAERS Safety Report 6750431-X (Version None)
Quarter: 2010Q2

REPORT INFORMATION
  Report Type: 
  Country: None (occurrence: None)
  Receive Date: 20100601
  Receipt Date: 20100519
  Transmission Date: 20101027
  Serious: Yes (Hospitalization)
  Sender: FDA-Public Use
  Company Number: CA-ELI_LILLY_AND_COMPANY-CA201005005467

PATIENT
  Age: 45 Year
  Sex: Male
  Weight: 67.12 kg

DRUGS (6)
  1. ZYPREXA [Suspect]
     Indication: ANXIETY
     Dosage: 2.5 MG, 2/D
     Route: 048
     Dates: start: 20090211, end: 20090303
  2. MEMANTINE HCL [Concomitant]
     Dosage: 5 MG, 2/D
     Route: 048
     Dates: start: 20080301, end: 20090303
  3. BUPROPION HCL [Concomitant]
     Dosage: 300 MG, DAILY (1/D)
     Dates: start: 20080701, end: 20090303
  4. SERTRALINE HCL [Concomitant]
     Dosage: 50 MG, DAILY (1/D)
     Dates: start: 20090201, end: 20090303
  5. CLONAZEPAM [Concomitant]
     Dosage: 0.25 MG, 2/D
     Dates: start: 20090201
  6. ZOPICLONE [Concomitant]
     Dosage: 5 MG, AS NEEDED
     Dates: end: 20090303

REACTIONS (6)
  - BLOOD CREATINE PHOSPHOKINASE INCREASED [None]
  - DISCOMFORT [None]
  - DRUG INTERACTION [None]
  - HEPATIC ENZYME INCREASED [None]
  - MUSCULOSKELETAL CHEST PAIN [None]
  - OFF LABEL USE [None]
